FAERS Safety Report 4754753-3 (Version None)
Quarter: 2005Q3

REPORT INFORMATION
  Report Type: 
  Country: None (occurrence: None)
  Receive Date: 20050826
  Receipt Date: 20050411
  Transmission Date: 20060218
  Serious: Yes (Other)
  Sender: FDA-Public Use
  Company Number: USA-2005-0019762

PATIENT
  Age: 17 Year
  Sex: Female

DRUGS (4)
  1. OXYCONTIN [Suspect]
  2. MORPHINE SULFATE [Suspect]
  3. MARIJUANA (CANNABIS) [Suspect]
  4. CORICIDIN [Suspect]

REACTIONS (1)
  - POLYSUBSTANCE ABUSE [None]
